FAERS Safety Report 9222352 (Version 1)
Quarter: 2013Q2

REPORT INFORMATION
  Report Type: Spontaneous
  Country: US (occurrence: None)
  Receive Date: 20130410
  Receipt Date: 20130410
  Transmission Date: 20140414
  Serious: Yes (Other)
  Sender: FDA-Public Use
  Company Number: None

PATIENT
  Age: 74 Year
  Sex: Female

DRUGS (4)
  1. WARFARIN 5 MG JANTOVEN [Suspect]
     Indication: ATRIAL FIBRILLATION
     Dosage: 1 TABLET MON AND FRI PO?
     Route: 048
     Dates: start: 20130131, end: 20130327
  2. WARFARIN 5 MG JANTOVEN [Suspect]
     Indication: THROMBOSIS PROPHYLAXIS
     Dosage: 1 TABLET MON AND FRI PO?
     Route: 048
     Dates: start: 20130131, end: 20130327
  3. WARFARIN 7.5 MG JANTOVEN [Suspect]
     Indication: ATRIAL FIBRILLATION
     Dosage: 1 TABLET  QDAY EXCEPT MON/FR PO
     Route: 048
  4. WARFARIN 7.5 MG JANTOVEN [Suspect]
     Indication: THROMBOSIS PROPHYLAXIS
     Dosage: 1 TABLET  QDAY EXCEPT MON/FR PO
     Route: 048

REACTIONS (3)
  - Incorrect dose administered [None]
  - Product colour issue [None]
  - Product quality issue [None]
